FAERS Safety Report 13160195 (Version 3)
Quarter: 2017Q1

REPORT INFORMATION
  Report Type: Report from Study
  Country: US (occurrence: US)
  Receive Date: 20170127
  Receipt Date: 20170216
  Transmission Date: 20170428
  Serious: Yes (Hospitalization)
  Sender: FDA-Public Use
  Company Number: US-ACTELION-A-NJ2017-148974

PATIENT
  Age: 58 Year
  Sex: Female
  Weight: 180 kg

DRUGS (7)
  1. ALDACTONE [Concomitant]
     Active Substance: SPIRONOLACTONE
  2. PREDNISONE. [Concomitant]
     Active Substance: PREDNISONE
  3. LASIX [Concomitant]
     Active Substance: FUROSEMIDE
  4. VELETRI [Suspect]
     Active Substance: EPOPROSTENOL
     Indication: PULMONARY ARTERIAL HYPERTENSION
     Dosage: 32 NG/KG, PER MIN
     Route: 042
     Dates: start: 20131204
  5. GABAPENTIN. [Concomitant]
     Active Substance: GABAPENTIN
  6. ADCIRCA [Concomitant]
     Active Substance: TADALAFIL
  7. DIGOXIN. [Concomitant]
     Active Substance: DIGOXIN

REACTIONS (14)
  - Dysphonia [Unknown]
  - Pain in jaw [Unknown]
  - Device related infection [Unknown]
  - Pain [Unknown]
  - Pain in extremity [Unknown]
  - Insomnia [Unknown]
  - Malaise [Unknown]
  - Lower respiratory tract infection [Unknown]
  - Catheter site infection [Not Recovered/Not Resolved]
  - Arthralgia [Unknown]
  - Catheter site discharge [Not Recovered/Not Resolved]
  - Catheter management [Unknown]
  - Fatigue [Unknown]
  - Nausea [Unknown]
